FAERS Safety Report 20018258 (Version 1)
Quarter: 2021Q4

REPORT INFORMATION
  Report Type: Spontaneous
  Country: US (occurrence: US)
  Receive Date: 20211101
  Receipt Date: 20211101
  Transmission Date: 20220303
  Serious: Yes (Death)
  Sender: FDA-Public Use
  Company Number: US-BAYER-2021A236388

PATIENT
  Age: 73 Year
  Sex: Male

DRUGS (1)
  1. GADAVIST [Suspect]
     Active Substance: GADOBUTROL
     Indication: Magnetic resonance imaging abdominal
     Dosage: UNK, ONCE
     Route: 042
     Dates: start: 20211020, end: 20211020

REACTIONS (3)
  - Cough [Fatal]
  - Foaming at mouth [Fatal]
  - Pulse absent [Fatal]

NARRATIVE: CASE EVENT DATE: 20211020
